FAERS Safety Report 12332676 (Version 1)
Quarter: 2016Q2

REPORT INFORMATION
  Report Type: Spontaneous
  Country: US (occurrence: US)
  Receive Date: 20160504
  Receipt Date: 20160504
  Transmission Date: 20160815
  Serious: No
  Sender: FDA-Public Use
  Company Number: US-ROCHE-ITM201506IM017488

PATIENT
  Age: 78 Year
  Sex: Female
  Weight: 74.91 kg

DRUGS (1)
  1. ESBRIET [Suspect]
     Active Substance: PIRFENIDONE
     Indication: IDIOPATHIC PULMONARY FIBROSIS
     Route: 048
     Dates: start: 20150407

REACTIONS (6)
  - Seasonal allergy [Unknown]
  - Sinus disorder [Unknown]
  - Rhinorrhoea [Unknown]
  - Eye pruritus [Unknown]
  - Diarrhoea [Unknown]
  - Rash [Unknown]

NARRATIVE: CASE EVENT DATE: 20150702
